FAERS Safety Report 8889935 (Version 1)
Quarter: 2012Q4

REPORT INFORMATION
  Report Type: 
  Country: US (occurrence: US)
  Receive Date: 20121107
  Receipt Date: 20121107
  Transmission Date: 20130627
  Serious: Yes (Other)
  Sender: FDA-Public Use
  Company Number: US-009507513-1211USA001250

PATIENT
  Sex: Male

DRUGS (1)
  1. FOSAMAX [Suspect]
     Indication: DYSPEPSIA
     Dosage: UNK, qw
     Dates: start: 2000, end: 2009

REACTIONS (1)
  - Adverse event [Unknown]
